FAERS Safety Report 8150752-2 (Version None)
Quarter: 2012Q1

REPORT INFORMATION
  Report Type: 
  Country: None (occurrence: None)
  Receive Date: 20120220
  Receipt Date: 20120215
  Transmission Date: 20120608
  Serious: Yes (Life-Threatening)
  Sender: FDA-Public Use
  Company Number: US-BAYER-2011-002775

PATIENT
  Age: 35 Year
  Sex: Female
  Weight: 143.31 kg

DRUGS (9)
  1. YAZ [Suspect]
     Indication: PREMENSTRUAL SYNDROME
  2. YASMIN [Suspect]
     Indication: PREMENSTRUAL SYNDROME
  3. MEPERIDINE/PROMETHAZINE [Concomitant]
     Route: 048
  4. CYCLOBENZAPRINE [Concomitant]
     Dosage: 10 MG, UNK
     Route: 048
  5. METFORMIN HCL [Concomitant]
     Route: 048
  6. YAZ [Suspect]
     Indication: DYSMENORRHOEA
     Dosage: UNK
     Dates: start: 20060831, end: 20061122
  7. YASMIN [Suspect]
     Indication: DYSMENORRHOEA
     Dosage: UNK
     Dates: start: 20070213, end: 20080116
  8. HYDROCODONE BITARTRATE AND ACETAMINOPHEN [Concomitant]
     Dosage: UNK MG, UNK
     Route: 048
  9. HYDROCODONE BITARTRATE AND ACETAMINOPHEN [Concomitant]
     Dosage: UNK

REACTIONS (8)
  - ASTHENIA [None]
  - FATIGUE [None]
  - ANXIETY [None]
  - DEEP VEIN THROMBOSIS [None]
  - DEFORMITY [None]
  - EMOTIONAL DISTRESS [None]
  - ANGIOPATHY [None]
  - PAIN [None]
